FAERS Safety Report 13076985 (Version 1)
Quarter: 2016Q4

REPORT INFORMATION
  Report Type: Spontaneous
  Country: US (occurrence: US)
  Receive Date: 20161230
  Receipt Date: 20161230
  Transmission Date: 20170207
  Serious: No
  Sender: FDA-Public Use
  Company Number: US-PFIZER INC-2016604361

PATIENT
  Age: 81 Year
  Sex: Female
  Weight: 73 kg

DRUGS (1)
  1. ADVIL [Suspect]
     Active Substance: IBUPROFEN
     Indication: ARTHRITIS
     Dosage: UNK (SOMETIMES SHE TAKES 6, SOMETIMES 4 DEPENDING ON HER PAIN, THE MOST SHE TAKES IS 6)
     Dates: end: 201612

REACTIONS (4)
  - Dysphagia [Unknown]
  - Incorrect drug administration duration [Unknown]
  - Dry throat [Unknown]
  - Dry mouth [Not Recovered/Not Resolved]

NARRATIVE: CASE EVENT DATE: 2014
